FAERS Safety Report 9329794 (Version 2)
Quarter: 2014Q2

REPORT INFORMATION
  Report Type: Spontaneous
  Country: US (occurrence: US)
  Receive Date: 20130604
  Receipt Date: 20140524
  Transmission Date: 20141212
  Serious: No
  Sender: FDA-Public Use
  Company Number: US-SANOFI-AVENTIS-2013SA037551

PATIENT
  Age: 87 Year
  Sex: Female

DRUGS (3)
  1. SOLOSTAR [Suspect]
     Indication: DEVICE THERAPY
  2. SOLOSTAR [Suspect]
     Indication: DIABETES MELLITUS
  3. LANTUS SOLOSTAR [Suspect]
     Indication: DIABETES MELLITUS
     Route: 051

REACTIONS (1)
  - Unevaluable event [Unknown]
